FAERS Safety Report 20711672 (Version 1)
Quarter: 2022Q2

REPORT INFORMATION
  Report Type: Spontaneous
  Country: RU (occurrence: RU)
  Receive Date: 20220414
  Receipt Date: 20220414
  Transmission Date: 20220721
  Serious: Yes (Hospitalization)
  Sender: FDA-Public Use
  Company Number: RU-BAYER-2022P000401

PATIENT
  Age: 12 Year
  Sex: Female
  Weight: 40 kg

DRUGS (1)
  1. DIENOGEST\ESTRADIOL VALERATE [Suspect]
     Active Substance: DIENOGEST\ESTRADIOL VALERATE
     Indication: Heavy menstrual bleeding
     Dosage: 1 DF, QD
     Route: 048
     Dates: start: 20211209, end: 20220207

REACTIONS (3)
  - Generalised tonic-clonic seizure [None]
  - Loss of consciousness [None]
  - Headache [Recovered/Resolved]

NARRATIVE: CASE EVENT DATE: 20220101
